FAERS Safety Report 23911682 (Version 1)
Quarter: 2024Q2

REPORT INFORMATION
  Report Type: Spontaneous
  Country: AT (occurrence: AT)
  Receive Date: 20240528
  Receipt Date: 20240528
  Transmission Date: 20240716
  Serious: Yes (Other)
  Sender: FDA-Public Use
  Company Number: None

PATIENT
  Age: 38 Year
  Sex: Female

DRUGS (1)
  1. AZITHROMYCIN [Suspect]
     Active Substance: AZITHROMYCIN
     Indication: Product used for unknown indication
     Dosage: OVER 3 DAYS
     Route: 065
     Dates: start: 20240426

REACTIONS (1)
  - Hemiparaesthesia [Not Recovered/Not Resolved]

NARRATIVE: CASE EVENT DATE: 20240427
